FAERS Safety Report 10243826 (Version 1)
Quarter: 2014Q2

REPORT INFORMATION
  Report Type: Spontaneous
  Country: US (occurrence: US)
  Receive Date: 20140618
  Receipt Date: 20140618
  Transmission Date: 20141212
  Serious: No
  Sender: FDA-Public Use
  Company Number: US-009507513-1406USA006192

PATIENT
  Age: 25 Year
  Sex: Female

DRUGS (2)
  1. JANUMET XR [Suspect]
     Indication: TYPE 2 DIABETES MELLITUS
     Dosage: UNK
     Route: 048
     Dates: start: 20140609, end: 20140609
  2. LISINOPRIL [Concomitant]

REACTIONS (1)
  - Urticaria [Recovering/Resolving]
